FAERS Safety Report 16764355 (Version 1)
Quarter: 2019Q3

REPORT INFORMATION
  Report Type: Spontaneous
  Country: DE (occurrence: DE)
  Receive Date: 20190902
  Receipt Date: 20190902
  Transmission Date: 20191005
  Serious: Yes (Other)
  Sender: FDA-Public Use
  Company Number: DE-GLAXOSMITHKLINE-D0006561A

PATIENT
  Sex: Male

DRUGS (1)
  1. RELENZA [Suspect]
     Active Substance: ZANAMIVIR
     Indication: INFLUENZA
     Dosage: UNK
     Dates: start: 20000209

REACTIONS (3)
  - Hepatitis B [Unknown]
  - Hepatic enzyme increased [Unknown]
  - Hepatitis A [Unknown]

NARRATIVE: CASE EVENT DATE: 20000211
